FAERS Safety Report 8157139-7 (Version None)
Quarter: 2012Q1

REPORT INFORMATION
  Report Type: 
  Country: None (occurrence: None)
  Receive Date: 20120222
  Receipt Date: 20120215
  Transmission Date: 20120608
  Serious: Yes (Hospitalization)
  Sender: FDA-Public Use
  Company Number: US-BAYER-2011-075052

PATIENT
  Age: 43 Year
  Sex: Female
  Weight: 68.027 kg

DRUGS (8)
  1. VITAMIN D [Concomitant]
     Dosage: 1000 MG, QD
     Route: 048
  2. YAZ [Suspect]
  3. YAZ [Suspect]
     Indication: CONTRACEPTION
     Dosage: UNK
     Route: 048
     Dates: start: 20090601, end: 20100201
  4. ASCORBIC ACID [Concomitant]
     Dosage: 500 MG, QD
     Route: 048
  5. YAZ [Suspect]
     Indication: PREMENSTRUAL SYNDROME
     Dosage: UNK
     Route: 048
     Dates: start: 20090601, end: 20100201
  6. MULTI-VITAMIN [Concomitant]
  7. 5-HYDROXYTRYPTOPHAN [Concomitant]
     Dosage: 50 MG, QD
     Route: 048
  8. DIGESTIVE ADVANTAGE IBS [Concomitant]
     Dosage: UNK UNK, QD
     Route: 048

REACTIONS (3)
  - PAIN [None]
  - DEEP VEIN THROMBOSIS [None]
  - INJURY [None]
